FAERS Safety Report 12713103 (Version 7)
Quarter: 2018Q3

REPORT INFORMATION
  Report Type: Report from Study
  Country: None (occurrence: US)
  Receive Date: 20160902
  Receipt Date: 20180807
  Transmission Date: 20181010
  Serious: Yes (Other)
  Sender: FDA-Public Use
  Company Number: US-ABBVIE-16K-163-1711382-00

PATIENT
  Age: 74 Year
  Sex: Female

DRUGS (3)
  1. HUMIRA [Suspect]
     Active Substance: ADALIMUMAB
     Route: 058
     Dates: start: 2018
  2. METHOTREXATE. [Suspect]
     Active Substance: METHOTREXATE
     Indication: PRODUCT USED FOR UNKNOWN INDICATION
     Route: 065
     Dates: end: 201607
  3. HUMIRA [Suspect]
     Active Substance: ADALIMUMAB
     Indication: PSORIATIC ARTHROPATHY
     Route: 058
     Dates: start: 201507, end: 20160720

REACTIONS (21)
  - Pulmonary thrombosis [Recovered/Resolved]
  - Interstitial lung disease [Unknown]
  - Back pain [Not Recovered/Not Resolved]
  - Rheumatoid arthritis [Not Recovered/Not Resolved]
  - Therapeutic response shortened [Not Recovered/Not Resolved]
  - Psoriatic arthropathy [Not Recovered/Not Resolved]
  - Lung disorder [Recovered/Resolved]
  - Peripheral swelling [Unknown]
  - Injection site bruising [Unknown]
  - Arthropathy [Unknown]
  - Pulmonary embolism [Recovering/Resolving]
  - Musculoskeletal stiffness [Unknown]
  - Sinusitis [Unknown]
  - Drug intolerance [Unknown]
  - Pain in extremity [Unknown]
  - Respiratory rate increased [Unknown]
  - Weight decreased [Unknown]
  - Skin mass [Unknown]
  - Fatigue [Unknown]
  - Nasopharyngitis [Unknown]
  - Anaemia [Unknown]

NARRATIVE: CASE EVENT DATE: 201607
